FAERS Safety Report 8060968-1 (Version None)
Quarter: 2012Q1

REPORT INFORMATION
  Report Type: 
  Country: None (occurrence: None)
  Receive Date: 20120120
  Receipt Date: 20120112
  Transmission Date: 20120608
  Serious: Yes (Hospitalization, Other)
  Sender: FDA-Public Use
  Company Number: PHHY2012US003037

PATIENT
  Age: 75 Year
  Sex: Male

DRUGS (5)
  1. INFLIXIMAB [Concomitant]
     Indication: RHEUMATOID ARTHRITIS
     Dosage: UNK
     Dates: end: 20080601
  2. ITRACONAZOLE [Suspect]
     Dosage: 300 MG, TID
     Route: 048
  3. METOPROLOL TARTRATE [Concomitant]
  4. ITRACONAZOLE [Suspect]
     Dosage: 200 MG, BID
     Route: 048
  5. ASPIRIN [Concomitant]

REACTIONS (12)
  - DYSPNOEA [None]
  - ORTHOPNOEA [None]
  - MENTAL STATUS CHANGES [None]
  - COUGH [None]
  - CARDIAC FAILURE CONGESTIVE [None]
  - ELECTROLYTE IMBALANCE [None]
  - TACHYPNOEA [None]
  - DRUG INEFFECTIVE [None]
  - RENAL FAILURE ACUTE [None]
  - MYOCARDIAL INFARCTION [None]
  - FLUID OVERLOAD [None]
  - OEDEMA PERIPHERAL [None]
